FAERS Safety Report 25466059 (Version 3)
Quarter: 2025Q4

REPORT INFORMATION
  Report Type: Spontaneous
  Country: JP (occurrence: JP)
  Receive Date: 20250623
  Receipt Date: 20251003
  Transmission Date: 20260118
  Serious: Yes (Other)
  Sender: GALDERMA
  Company Number: JP-GALDERMA-JP2025010523

PATIENT

DRUGS (7)
  1. NEMOLIZUMAB [Suspect]
     Active Substance: NEMOLIZUMAB
     Indication: Dermatitis atopic
     Dosage: 60 MILLIGRAM/ 4 WEEKS
     Route: 058
     Dates: start: 20250521, end: 20250521
  2. BETAMETHASONE BUTYRATE PROPIONATE [Concomitant]
     Active Substance: BETAMETHASONE BUTYRATE PROPIONATE
     Indication: Eczema asteatotic
     Dosage: UNK
     Route: 061
     Dates: start: 20250227
  3. Heparinoid [Concomitant]
     Indication: Eczema asteatotic
     Dosage: UNK
     Route: 061
     Dates: start: 20250227
  4. DESLORATADINE [Concomitant]
     Active Substance: DESLORATADINE
     Indication: Dermatitis atopic
     Dosage: 5 MILLIGRAM
     Route: 048
     Dates: start: 20250326
  5. DIFLUPREDNATE [Concomitant]
     Active Substance: DIFLUPREDNATE
     Indication: Dermatitis atopic
     Dosage: UNK
     Route: 061
     Dates: start: 20250326
  6. DELGOCITINIB [Concomitant]
     Active Substance: DELGOCITINIB
     Indication: Dermatitis atopic
     Dosage: UNK
     Route: 061
     Dates: start: 20250416
  7. Isodine sugar [Concomitant]
     Indication: Skin ulcer
     Dosage: UNK
     Route: 061
     Dates: start: 20250519

REACTIONS (4)
  - Dermatitis exfoliative generalised [Recovering/Resolving]
  - Generalised oedema [Unknown]
  - Hydrocele [Recovered/Resolved]
  - Pleural effusion [Unknown]

NARRATIVE: CASE EVENT DATE: 20250527
